FAERS Safety Report 12808132 (Version 21)
Quarter: 2021Q4

REPORT INFORMATION
  Report Type: Spontaneous
  Country: US (occurrence: US)
  Receive Date: 20161004
  Receipt Date: 20211213
  Transmission Date: 20220303
  Serious: Yes (Hospitalization, Other)
  Sender: FDA-Public Use
  Company Number: US-PFIZER INC-2016460329

PATIENT
  Age: 81 Year
  Sex: Female
  Weight: 93 kg

DRUGS (13)
  1. LYRICA [Suspect]
     Active Substance: PREGABALIN
     Indication: Pain
     Dosage: UNK, 4X/DAY
     Route: 048
     Dates: start: 2013
  2. LYRICA [Suspect]
     Active Substance: PREGABALIN
     Indication: Arthritis
     Dosage: 50 MG, 3X/DAY
     Route: 048
     Dates: start: 20130304
  3. LYRICA [Suspect]
     Active Substance: PREGABALIN
     Indication: Lumbar spinal stenosis
     Dosage: 75 MG, 3X/DAY
     Route: 048
  4. LYRICA [Suspect]
     Active Substance: PREGABALIN
     Indication: Pain in extremity
     Dosage: 50 MG, 3X/DAY
     Route: 048
  5. LYRICA [Suspect]
     Active Substance: PREGABALIN
     Indication: Neuralgia
  6. LYRICA [Suspect]
     Active Substance: PREGABALIN
     Indication: Fibromyalgia
  7. PANTOPRAZOLE [Concomitant]
     Active Substance: PANTOPRAZOLE
     Indication: Flatulence
     Dosage: 40 MG, 2X/DAY
     Route: 048
     Dates: start: 2016
  8. PANTOPRAZOLE [Concomitant]
     Active Substance: PANTOPRAZOLE
     Indication: Hiatus hernia
  9. DOXEPIN [Concomitant]
     Active Substance: DOXEPIN
     Indication: Sleep disorder
     Dosage: 25 MG, 1X/DAY [ONE EVERY NIGHT]
  10. DOXEPIN [Concomitant]
     Active Substance: DOXEPIN
     Indication: Bradyphrenia
  11. LORAZEPAM [Concomitant]
     Active Substance: LORAZEPAM
     Indication: Sleep disorder
     Dosage: 1.5 MG, 1X/DAY [EVERY NIGHT]
  12. DILTIZEM [Concomitant]
     Indication: Blood pressure abnormal
     Dosage: 120 MG, DAILY [EVERY DAY]
  13. ADVAIR HFA [Concomitant]
     Active Substance: FLUTICASONE PROPIONATE\SALMETEROL XINAFOATE
     Dosage: UNK

REACTIONS (17)
  - Pneumonia bacterial [Recovered/Resolved]
  - Atrial fibrillation [Recovering/Resolving]
  - Hallucination [Unknown]
  - Fall [Unknown]
  - Product dose omission issue [Unknown]
  - Intentional product misuse [Unknown]
  - Fluid retention [Recovering/Resolving]
  - Musculoskeletal stiffness [Recovering/Resolving]
  - Pain in extremity [Recovering/Resolving]
  - Stress [Unknown]
  - Pharyngeal disorder [Unknown]
  - Weight decreased [Unknown]
  - Peripheral coldness [Unknown]
  - Grip strength decreased [Unknown]
  - Insomnia [Unknown]
  - Ear discomfort [Unknown]
  - Memory impairment [Unknown]

NARRATIVE: CASE EVENT DATE: 20160101
